FAERS Safety Report 10080606 (Version 2)
Quarter: 2014Q2

REPORT INFORMATION
  Report Type: Spontaneous
  Country: AL (occurrence: AL)
  Receive Date: 20140416
  Receipt Date: 20140422
  Transmission Date: 20141212
  Serious: Yes (Death)
  Sender: FDA-Public Use
  Company Number: AL-ROCHE-1384264

PATIENT
  Age: 63 Year
  Sex: Male

DRUGS (2)
  1. BEVACIZUMAB [Suspect]
     Indication: PRODUCT USED FOR UNKNOWN INDICATION
     Dosage: 2 STANDARD DOSES
     Route: 065
  2. TEMOZOLOMIDE [Concomitant]
     Dosage: 2 MONTHLY CYCLE FOR 5 CONSECUTIVE DAYS
     Route: 065

REACTIONS (1)
  - Metastases to central nervous system [Fatal]
